FAERS Safety Report 10024074 (Version 2)
Quarter: 2014Q1

REPORT INFORMATION
  Report Type: Report from Study
  Country: BR (occurrence: BR)
  Receive Date: 20140320
  Receipt Date: 20140320
  Transmission Date: 20141002
  Serious: Yes (Other)
  Sender: FDA-Public Use
  Company Number: BR-ROCHE-789037

PATIENT
  Age: 53 Year
  Sex: Female
  Weight: 45 kg

DRUGS (15)
  1. MABTHERA [Suspect]
     Indication: RHEUMATOID ARTHRITIS
     Dosage: DATE OF LAST DOSE: 12/APR/2012 FORM: INFUSION
     Route: 042
     Dates: start: 20100301, end: 20120417
  2. ACTEMRA [Suspect]
     Indication: RHEUMATOID ARTHRITIS
     Route: 042
     Dates: start: 20130308, end: 20131001
  3. TAMOXIFEN [Concomitant]
     Route: 065
  4. DEFLAZACORT [Concomitant]
     Route: 065
  5. PRANDIN [Concomitant]
     Route: 065
  6. GLIMEPIRIDE [Concomitant]
     Dosage: AFTER LUNCH
     Route: 065
  7. MELOXICAM [Concomitant]
     Dosage: AT NIGHT
     Route: 065
  8. CALCORT [Concomitant]
     Route: 065
  9. ARAVA [Concomitant]
     Route: 065
  10. PRED FORTE [Concomitant]
     Dosage: REPORTED AS PRED FORT
     Route: 065
  11. MOVATEC [Concomitant]
  12. GALVUS [Concomitant]
  13. JANUVIA [Concomitant]
  14. AMARYL [Concomitant]
  15. DEFLAZACORT [Concomitant]

REACTIONS (8)
  - Retinal detachment [Recovered/Resolved]
  - Nasopharyngitis [Not Recovered/Not Resolved]
  - Nausea [Recovered/Resolved]
  - Erythema [Recovered/Resolved]
  - Weight increased [Unknown]
  - Drug ineffective [Unknown]
  - Rhinitis allergic [Unknown]
  - Weight decreased [Unknown]
